FAERS Safety Report 14222461 (Version 2)
Quarter: 2019Q1

REPORT INFORMATION
  Report Type: Report from Study
  Country: IT (occurrence: IT)
  Receive Date: 20171124
  Receipt Date: 20190201
  Transmission Date: 20190417
  Serious: Yes (Other)
  Sender: FDA-Public Use
  Company Number: IT-ACCORD-061268

PATIENT
  Age: 47 Year
  Sex: Female
  Weight: 51 kg

DRUGS (2)
  1. GEMCITABINE ACCORD [Suspect]
     Active Substance: GEMCITABINE HYDROCHLORIDE
     Indication: OVARIAN CANCER
     Dosage: STRENGTH: 100 MG/ML
     Route: 042
     Dates: start: 20171016, end: 20171107
  2. CARBOPLATIN TEVA [Suspect]
     Active Substance: CARBOPLATIN
     Indication: OVARIAN CANCER
     Dosage: STRENGTH:  10 MG/ ML
     Route: 042
     Dates: start: 20171016, end: 20171107

REACTIONS (4)
  - Asthenia [Unknown]
  - Tachycardia [Unknown]
  - Pyrexia [Unknown]
  - Dysuria [Unknown]

NARRATIVE: CASE EVENT DATE: 20171023
